FAERS Safety Report 8524482-9 (Version None)
Quarter: 2012Q3

REPORT INFORMATION
  Report Type: 
  Country: None (occurrence: None)
  Receive Date: 20120720
  Receipt Date: 20120125
  Transmission Date: 20120928
  Serious: No
  Sender: FDA-Public Use
  Company Number: US-MYLANLABS-2012S1001972

PATIENT
  Age: 59 Year
  Sex: Female

DRUGS (6)
  1. RITALIN [Concomitant]
     Indication: ATTENTION DEFICIT/HYPERACTIVITY DISORDER
     Dosage: OCD
     Route: 048
  2. MINIPRESS [Concomitant]
     Indication: BLOOD PRESSURE
  3. LASIX [Concomitant]
     Indication: BLOOD PRESSURE
  4. PROZAC [Concomitant]
     Indication: DEPRESSION
     Dosage: EIGHT A DAY
     Route: 048
  5. BUSPIRONE HCL [Suspect]
     Indication: ANXIETY
     Dosage: TAKES ONE TO THREE TABLETS DAILY
     Route: 048
     Dates: start: 20110801, end: 20110815
  6. HYDRALAZINE HCL [Concomitant]
     Indication: BLOOD PRESSURE

REACTIONS (3)
  - ANXIETY [None]
  - DRUG INEFFECTIVE [None]
  - ABNORMAL DREAMS [None]
